FAERS Safety Report 14778726 (Version 5)
Quarter: 2018Q4

REPORT INFORMATION
  Report Type: Spontaneous
  Country: CA (occurrence: CA)
  Receive Date: 20180419
  Receipt Date: 20181128
  Transmission Date: 20190204
  Serious: Yes (Other)
  Sender: FDA-Public Use
  Company Number: CA-CELLTRION INC.-2017CA016542

PATIENT

DRUGS (8)
  1. INFLECTRA [Suspect]
     Active Substance: INFLIXIMAB-DYYB
     Dosage: 500 MG, THEN EVERY 4 WEEKS
     Route: 042
     Dates: start: 20170425, end: 20180822
  2. INFLECTRA [Suspect]
     Active Substance: INFLIXIMAB-DYYB
     Dosage: 500 MG, CYCLIC (EVERY 8 WEEKS)
     Route: 042
     Dates: start: 20180116
  3. INFLECTRA [Suspect]
     Active Substance: INFLIXIMAB-DYYB
     Dosage: 500 MG, THEN EVERY 4 WEEKS
     Route: 042
     Dates: start: 20180926
  4. METRONIDAZOLE. [Concomitant]
     Active Substance: METRONIDAZOLE
     Dosage: 250 MG, 3X/DAY
     Dates: start: 20170216
  5. INFLECTRA [Suspect]
     Active Substance: INFLIXIMAB-DYYB
     Indication: CROHN^S DISEASE
     Dosage: 500 MG, CYCLIC (EVERY 8 WEEKS)
     Route: 042
     Dates: start: 20170425
  6. INFLECTRA [Suspect]
     Active Substance: INFLIXIMAB-DYYB
     Dosage: 500 MG, THEN EVERY 4 WEEKS
     Route: 042
     Dates: start: 20180427
  7. CIPROFLOXACIN. [Concomitant]
     Active Substance: CIPROFLOXACIN
     Dosage: 500 MG,2X/DAY
     Dates: start: 20170216
  8. INFLECTRA [Suspect]
     Active Substance: INFLIXIMAB-DYYB
     Dosage: 500 MG, THEN EVERY 4 WEEKS
     Route: 042
     Dates: start: 20180313

REACTIONS (7)
  - Heart rate increased [Recovered/Resolved]
  - Product use issue [Unknown]
  - Pyrexia [Recovered/Resolved]
  - Nasopharyngitis [Not Recovered/Not Resolved]
  - Pyrexia [Not Recovered/Not Resolved]
  - Anal fissure [Not Recovered/Not Resolved]
  - Weight increased [Unknown]

NARRATIVE: CASE EVENT DATE: 20171121
